FAERS Safety Report 15775944 (Version 1)
Quarter: 2018Q4

REPORT INFORMATION
  Report Type: Spontaneous
  Country: US (occurrence: US)
  Receive Date: 20181224
  Receipt Date: 20181224
  Transmission Date: 20190205
  Serious: No
  Sender: FDA-Public Use
  Company Number: None

PATIENT

DRUGS (2)
  1. GEMFIBROZIL. [Suspect]
     Active Substance: GEMFIBROZIL
  2. GABAPENTIN 600MG [Suspect]
     Active Substance: GABAPENTIN

REACTIONS (5)
  - Intercepted product dispensing error [None]
  - Product appearance confusion [None]
  - Product packaging confusion [None]
  - Intercepted product selection error [None]
  - Product label confusion [None]
